FAERS Safety Report 12853129 (Version 1)
Quarter: 2016Q4

REPORT INFORMATION
  Report Type: Spontaneous
  Country: GB (occurrence: GB)
  Receive Date: 20161017
  Receipt Date: 20161017
  Transmission Date: 20170207
  Serious: Yes (Life-Threatening)
  Sender: FDA-Public Use
  Company Number: PHHY2016GB138332

PATIENT
  Age: 65 Year
  Sex: Female

DRUGS (1)
  1. CO-AMOXICLAV [Suspect]
     Active Substance: AMOXICILLIN\CLAVULANIC ACID
     Indication: PREOPERATIVE CARE
     Dosage: 1200 MG, UNK
     Route: 042
     Dates: start: 20160205, end: 20160205

REACTIONS (3)
  - Atrioventricular block complete [Unknown]
  - Cardiac arrest [Recovered/Resolved]
  - Tryptase increased [Unknown]

NARRATIVE: CASE EVENT DATE: 20160205
